FAERS Safety Report 25372213 (Version 1)
Quarter: 2025Q2

REPORT INFORMATION
  Report Type: Spontaneous
  Country: US (occurrence: US)
  Receive Date: 20250529
  Receipt Date: 20250529
  Transmission Date: 20250716
  Serious: Yes (Other)
  Sender: DR REDDYS
  Company Number: US-DRL-USA-USA/2025/05/007676

PATIENT
  Age: 12 Year
  Sex: Male

DRUGS (5)
  1. SIROLIMUS [Suspect]
     Active Substance: SIROLIMUS
     Indication: Evans syndrome
  2. SIROLIMUS [Suspect]
     Active Substance: SIROLIMUS
  3. PREDNISONE [Concomitant]
     Active Substance: PREDNISONE
     Indication: Skeletal dysplasia
  4. PREDNISONE [Concomitant]
     Active Substance: PREDNISONE
     Indication: Immune system disorder
  5. PREDNISONE [Concomitant]
     Active Substance: PREDNISONE
     Indication: Evans syndrome

REACTIONS (2)
  - Drug ineffective for unapproved indication [Unknown]
  - Hypertransaminasaemia [Unknown]
